FAERS Safety Report 5121304-3 (Version None)
Quarter: 2006Q4

REPORT INFORMATION
  Report Type: 
  Country: None (occurrence: None)
  Receive Date: 20061002
  Receipt Date: 20060919
  Transmission Date: 20070319
  Serious: Yes (Other)
  Sender: FDA-Public Use
  Company Number: 2006089153

PATIENT
  Sex: Male
  Weight: 86.1834 kg

DRUGS (3)
  1. VIAGRA [Suspect]
     Indication: ERECTILE DYSFUNCTION
     Dosage: ORAL
     Route: 048
  2. DRUG (DRUG) [Suspect]
     Indication: RESTLESS LEGS SYNDROME
  3. MULTIVITAMIN [Concomitant]

REACTIONS (8)
  - BLINDNESS UNILATERAL [None]
  - CATARACT [None]
  - EXOSTOSIS [None]
  - HEADACHE [None]
  - INTERVERTEBRAL DISC PROTRUSION [None]
  - RESTLESS LEGS SYNDROME [None]
  - RETINAL DISORDER [None]
  - THERAPY NON-RESPONDER [None]
